FAERS Safety Report 7481988-1 (Version None)
Quarter: 2011Q2

REPORT INFORMATION
  Report Type: 
  Country: None (occurrence: None)
  Receive Date: 20110516
  Receipt Date: 20110509
  Transmission Date: 20111010
  Serious: Yes (Other)
  Sender: FDA-Public Use
  Company Number: CHPA2011US05850

PATIENT
  Sex: Male
  Weight: 122.45 kg

DRUGS (3)
  1. VOLTAREN [Suspect]
     Indication: OSTEOARTHRITIS
     Dosage: A DAB, UNK
     Route: 061
  2. DRUG THERAPY NOS [Concomitant]
  3. VOLTAREN [Suspect]
     Dosage: UNK
     Route: 061
     Dates: start: 20090101

REACTIONS (3)
  - THERAPEUTIC RESPONSE UNEXPECTED [None]
  - DRUG INEFFECTIVE [None]
  - KNEE ARTHROPLASTY [None]
